FAERS Safety Report 10376907 (Version 3)
Quarter: 2014Q4

REPORT INFORMATION
  Report Type: Spontaneous
  Country: US (occurrence: US)
  Receive Date: 20140811
  Receipt Date: 20141014
  Transmission Date: 20150528
  Serious: Yes (Life-Threatening, Other)
  Sender: FDA-Public Use
  Company Number: US-JNJFOC-20140802785

PATIENT
  Age: 39 Year
  Sex: Male

DRUGS (6)
  1. SULFASALAZINE. [Concomitant]
     Active Substance: SULFASALAZINE
     Route: 065
  2. BENADRYL [Suspect]
     Active Substance: DIPHENHYDRAMINE HYDROCHLORIDE
     Indication: PRURITUS
     Route: 065
     Dates: start: 20140729
  3. REMICADE [Concomitant]
     Active Substance: INFLIXIMAB
     Indication: ANKYLOSING SPONDYLITIS
     Dosage: 600MG SECOND DOSE
     Route: 042
     Dates: start: 20140715, end: 20140729
  4. SOLU-MEDROL [Concomitant]
     Active Substance: METHYLPREDNISOLONE SODIUM SUCCINATE
     Indication: PRURITUS
     Route: 065
  5. BENADRYL [Suspect]
     Active Substance: DIPHENHYDRAMINE HYDROCHLORIDE
     Indication: ERYTHEMA
     Route: 065
     Dates: start: 20140729
  6. SOLU-MEDROL [Concomitant]
     Active Substance: METHYLPREDNISOLONE SODIUM SUCCINATE
     Indication: ERYTHEMA
     Route: 065

REACTIONS (8)
  - Swollen tongue [Recovered/Resolved]
  - Peripheral swelling [Recovered/Resolved]
  - Mouth swelling [Unknown]
  - Product use issue [Unknown]
  - Erythema [Unknown]
  - Lip swelling [Recovered/Resolved]
  - Pruritus [Recovered/Resolved]
  - Rash [Recovered/Resolved]

NARRATIVE: CASE EVENT DATE: 20140729
